FAERS Safety Report 4423204-0 (Version None)
Quarter: 2004Q3

REPORT INFORMATION
  Report Type: 
  Country: None (occurrence: None)
  Receive Date: 20040809
  Receipt Date: 20040809
  Transmission Date: 20050211
  Serious: Yes (Death)
  Sender: FDA-Public Use
  Company Number: None

PATIENT
  Age: 19 Year
  Sex: Male
  Weight: 71.6683 kg

DRUGS (2)
  1. ZOLOFT [Suspect]
     Indication: ANXIETY DISORDER
     Dosage: O.D.   P.O.
     Route: 048
     Dates: start: 20031007, end: 20031122
  2. ZOLOFT [Suspect]
     Indication: SOCIAL PHOBIA
     Dosage: O.D.   P.O.
     Route: 048
     Dates: start: 20031007, end: 20031122

REACTIONS (2)
  - COMPLETED SUICIDE [None]
  - GUN SHOT WOUND [None]
